FAERS Safety Report 7203642-3 (Version None)
Quarter: 2010Q4

REPORT INFORMATION
  Report Type: 
  Country: None (occurrence: None)
  Receive Date: 20101228
  Receipt Date: 20101228
  Transmission Date: 20110411
  Serious: No
  Sender: FDA-Public Use
  Company Number: None

PATIENT
  Age: 63 Year
  Sex: Male
  Weight: 69.8539 kg

DRUGS (2)
  1. AVELOX [Suspect]
     Indication: BRONCHITIS
     Dosage: 1 PILL DAILY PO
     Route: 048
     Dates: start: 20101220, end: 20101227
  2. AVELOX [Suspect]
     Indication: NASOPHARYNGITIS
     Dosage: 1 PILL DAILY PO
     Route: 048
     Dates: start: 20101220, end: 20101227

REACTIONS (7)
  - AGITATION [None]
  - DECREASED APPETITE [None]
  - HEADACHE [None]
  - NAUSEA [None]
  - OEDEMA PERIPHERAL [None]
  - SLEEP DISORDER [None]
  - TREMOR [None]
